FAERS Safety Report 11174966 (Version 2)
Quarter: 2015Q3

REPORT INFORMATION
  Report Type: Spontaneous
  Country: US (occurrence: US)
  Receive Date: 20150609
  Receipt Date: 20150716
  Transmission Date: 20151125
  Serious: Yes (Death)
  Sender: FDA-Public Use
  Company Number: US-PFIZER INC-2015189506

PATIENT
  Age: 84 Year
  Sex: Female
  Weight: 45.4 kg

DRUGS (1)
  1. INLYTA [Suspect]
     Active Substance: AXITINIB
     Indication: NEOPLASM MALIGNANT
     Dosage: 5 MG, 2X/DAY

REACTIONS (2)
  - Disease progression [Fatal]
  - Neoplasm malignant [Fatal]
